FAERS Safety Report 25725982 (Version 1)
Quarter: 2025Q3

REPORT INFORMATION
  Report Type: Spontaneous
  Country: US (occurrence: US)
  Receive Date: 20250826
  Receipt Date: 20250826
  Transmission Date: 20251020
  Serious: Yes (Other)
  Sender: BRISTOL-MYERS SQUIBB COMPANY
  Company Number: US-BRISTOL-MYERS SQUIBB COMPANY-2025-118020

PATIENT
  Age: 84 Year
  Sex: Female
  Weight: 54 kg

DRUGS (5)
  1. ELIQUIS [Suspect]
     Active Substance: APIXABAN
     Indication: Product used for unknown indication
  2. LOPERAMIDE HYDROCHLORIDE [Concomitant]
     Active Substance: LOPERAMIDE HYDROCHLORIDE
     Indication: Diarrhoea
     Dates: start: 20250528
  3. LIPITOR [Concomitant]
     Active Substance: ATORVASTATIN CALCIUM
     Indication: Product used for unknown indication
     Dosage: PRESCRIBED TO TAKE 1 TABLET (80 MG TOTAL) BY MOUTH EVERY NIGHT. PATIENT TAKING DIFFERENTLY: 0.5 TABL
     Route: 048
     Dates: start: 20250317, end: 20250819
  4. COLESTID [Concomitant]
     Active Substance: COLESTIPOL HYDROCHLORIDE
     Indication: Product used for unknown indication
     Dosage: TAKE ONE GRAM, 2 TABLETS (2 G TOTAL) BY MOUTH IN THE MORNING AND 2 TABLETS (2 G TOTAL) AT NOON AND 2
     Route: 048
     Dates: start: 20221206, end: 20250819
  5. TIKOSYN [Concomitant]
     Active Substance: DOFETILIDE
     Indication: Product used for unknown indication
     Dates: start: 20250303

REACTIONS (4)
  - Hypocoagulable state [Unknown]
  - Lung neoplasm malignant [Unknown]
  - Cardiac failure acute [Unknown]
  - Acquired ATTR amyloidosis [Unknown]
